FAERS Safety Report 4535311-2 (Version None)
Quarter: 2004Q4

REPORT INFORMATION
  Report Type: 
  Country: None (occurrence: None)
  Receive Date: 20041214
  Receipt Date: 20041001
  Transmission Date: 20050328
  Serious: No
  Sender: FDA-Public Use
  Company Number: 2004237037US

PATIENT
  Age: 61 Year
  Sex: Female

DRUGS (1)
  1. BEXTRA [Suspect]
     Indication: FIBROMYALGIA
     Dosage: 10 MG, PRN, ORAL
     Route: 048
     Dates: start: 20020101, end: 20040801

REACTIONS (5)
  - FUNGAL INFECTION [None]
  - HYPERSENSITIVITY [None]
  - ORAL MUCOSAL BLISTERING [None]
  - RASH ERYTHEMATOUS [None]
  - SWELLING FACE [None]
